FAERS Safety Report 10518332 (Version 4)
Quarter: 2015Q2

REPORT INFORMATION
  Report Type: Report from Study
  Country: US (occurrence: US)
  Receive Date: 20141015
  Receipt Date: 20150626
  Transmission Date: 20150821
  Serious: Yes (Hospitalization, Other)
  Sender: FDA-Public Use
  Company Number: US-SA-2014SA138470

PATIENT
  Age: 53 Year
  Sex: Male

DRUGS (1)
  1. FABRAZYME [Suspect]
     Active Substance: AGALSIDASE BETA
     Indication: FABRY^S DISEASE
     Dosage: FREQUENCY: 2XMO
     Route: 042
     Dates: start: 20030820

REACTIONS (6)
  - Scar [Unknown]
  - Nephrolithiasis [Unknown]
  - Cerebrovascular accident [Unknown]
  - Thrombosis [Not Recovered/Not Resolved]
  - Chronic kidney disease [Unknown]
  - Urethral obstruction [Unknown]

NARRATIVE: CASE EVENT DATE: 2014
